FAERS Safety Report 6682298-2 (Version None)
Quarter: 2010Q2

REPORT INFORMATION
  Report Type: 
  Country: None (occurrence: None)
  Receive Date: 20100414
  Receipt Date: 20100414
  Transmission Date: 20101027
  Serious: Yes (Disabling)
  Sender: FDA-Public Use
  Company Number: None

PATIENT
  Age: 71 Year
  Sex: Female
  Weight: 72.1219 kg

DRUGS (1)
  1. ALDARA [Suspect]
     Dosage: ALDARA 3 TIMES VULVA

REACTIONS (3)
  - ASTHENIA [None]
  - RASH [None]
  - VULVAL CANCER [None]
